FAERS Safety Report 15743766 (Version 3)
Quarter: 2019Q2

REPORT INFORMATION
  Report Type: Report from Study
  Country: US (occurrence: US)
  Receive Date: 20181220
  Receipt Date: 20190401
  Transmission Date: 20190711
  Serious: Yes (Hospitalization, Other)
  Sender: FDA-Public Use
  Company Number: US-BRISTOL-MYERS SQUIBB COMPANY-BMS-2018-116732

PATIENT
  Age: 57 Year
  Sex: Male

DRUGS (3)
  1. LEVOTHYROXINE. [Concomitant]
     Active Substance: LEVOTHYROXINE
     Indication: THYROID DISORDER
     Dosage: UNK
     Route: 065
  2. NIVOLUMAB [Suspect]
     Active Substance: NIVOLUMAB
     Indication: MALIGNANT MELANOMA
     Dosage: 480 MG, Q4WK
     Route: 042
     Dates: end: 20181009
  3. IPILIMUMAB [Suspect]
     Active Substance: IPILIMUMAB
     Indication: MALIGNANT MELANOMA
     Dosage: UNK
     Route: 065

REACTIONS (30)
  - Colitis [Unknown]
  - Insomnia [Unknown]
  - Pruritus [Recovered/Resolved]
  - Asthenia [Unknown]
  - Feeling cold [Unknown]
  - Influenza [Unknown]
  - Injection site rash [Unknown]
  - Blood thyroid stimulating hormone increased [Unknown]
  - Autoimmune disorder [Unknown]
  - Nasopharyngitis [Unknown]
  - Adrenal insufficiency [Unknown]
  - Skin disorder [Unknown]
  - Thyroid disorder [Unknown]
  - Headache [Unknown]
  - Vomiting [Unknown]
  - Anger [Unknown]
  - Amylase increased [Unknown]
  - Cough [Unknown]
  - Sluggishness [Unknown]
  - Fatigue [Unknown]
  - Body temperature decreased [Not Recovered/Not Resolved]
  - Urine flow decreased [Unknown]
  - Hypothalamo-pituitary disorder [Unknown]
  - Joint stiffness [Unknown]
  - Duodenitis [Not Recovered/Not Resolved]
  - Thyroxine decreased [Unknown]
  - Infusion related reaction [Unknown]
  - Nausea [Unknown]
  - Chest pain [Recovered/Resolved]
  - Lipase increased [Unknown]

NARRATIVE: CASE EVENT DATE: 201902
